FAERS Safety Report 9734406 (Version 1)
Quarter: 2013Q4

REPORT INFORMATION
  Report Type: Report from Study
  Country: PK (occurrence: PK)
  Receive Date: 20131206
  Receipt Date: 20131206
  Transmission Date: 20140711
  Serious: Yes (Other)
  Sender: FDA-Public Use
  Company Number: PK-ROCHE-1314093

PATIENT
  Sex: 0

DRUGS (4)
  1. CEFTRIAXONE [Suspect]
     Indication: MENINGITIS
     Route: 065
  2. VANCOMYCIN [Suspect]
     Indication: MENINGITIS
     Route: 065
  3. AMIKACIN [Suspect]
     Indication: MENINGITIS
     Route: 065
  4. CO-AMOXICLAV [Suspect]
     Indication: MENINGITIS
     Route: 065

REACTIONS (1)
  - Treatment failure [Unknown]
